FAERS Safety Report 21498551 (Version 3)
Quarter: 2024Q4

REPORT INFORMATION
  Report Type: Report from Study
  Country: JP (occurrence: JP)
  Receive Date: 20221024
  Receipt Date: 20241111
  Transmission Date: 20250115
  Serious: Yes (Other)
  Sender: VIIV
  Company Number: JP-ViiV Healthcare Limited-JP2021JPN247469

PATIENT

DRUGS (1)
  1. DOLUTEGRAVIR SODIUM\LAMIVUDINE [Suspect]
     Active Substance: DOLUTEGRAVIR SODIUM\LAMIVUDINE
     Indication: HIV infection
     Dosage: 1 DF, 1D
     Dates: start: 20201002

REACTIONS (11)
  - Cough variant asthma [Recovering/Resolving]
  - Stomatitis [Recovering/Resolving]
  - Anal fissure [Recovering/Resolving]
  - Pharyngeal chlamydia infection [Recovering/Resolving]
  - Pharyngitis bacterial [Recovering/Resolving]
  - Influenza [Recovering/Resolving]
  - COVID-19 [Recovered/Resolved]
  - Haemorrhoids [Recovering/Resolving]
  - Cough [Recovering/Resolving]
  - Anogenital warts [Recovering/Resolving]
  - Insomnia [Recovering/Resolving]

NARRATIVE: CASE EVENT DATE: 20201102
